FAERS Safety Report 11103949 (Version 1)
Quarter: 2015Q2

REPORT INFORMATION
  Report Type: Spontaneous
  Country: US (occurrence: US)
  Receive Date: 20150511
  Receipt Date: 20150511
  Transmission Date: 20150821
  Serious: Yes (Hospitalization)
  Sender: FDA-Public Use
  Company Number: US-BAYER-2015-182677

PATIENT
  Age: 53 Year
  Sex: Female
  Weight: 51.2 kg

DRUGS (4)
  1. ADEMPAS [Suspect]
     Active Substance: RIOCIGUAT
     Indication: PRODUCT USED FOR UNKNOWN INDICATION
  2. LETAIRIS [Concomitant]
     Active Substance: AMBRISENTAN
  3. REMODULIN [Suspect]
     Active Substance: TREPROSTINIL
     Indication: PULMONARY ARTERIAL HYPERTENSION
     Dosage: DAILY DOSE .088 ?G/KG
     Route: 042
     Dates: start: 20070817
  4. REMODULIN [Suspect]
     Active Substance: TREPROSTINIL
     Indication: PULMONARY ARTERIAL HYPERTENSION
     Dosage: DAILY DOSE .088 ?G/KG
     Route: 042
     Dates: start: 20070525

REACTIONS (6)
  - Fluid overload [None]
  - Oedema [None]
  - Dyspnoea [None]
  - Oedema peripheral [None]
  - Localised oedema [None]
  - Right ventricular dysfunction [None]

NARRATIVE: CASE EVENT DATE: 20150406
